FAERS Safety Report 8591496-2 (Version None)
Quarter: 2012Q3

REPORT INFORMATION
  Report Type: 
  Country: None (occurrence: None)
  Receive Date: 20120801
  Receipt Date: 20120716
  Transmission Date: 20120928
  Serious: Yes (Hospitalization)
  Sender: FDA-Public Use
  Company Number: AEGBR201200364

PATIENT
  Age: 13 Year
  Sex: Female
  Weight: 45 kg

DRUGS (18)
  1. ACETAMINOPHEN [Concomitant]
  2. TOBRAMYCIN [Concomitant]
  3. THEOPHYLLINE [Concomitant]
  4. URSODIOL [Concomitant]
  5. CREON [Concomitant]
  6. ALBUTEROL SULATE [Concomitant]
  7. IMMUNE GLOBULIN INTRAVENOUS (HUMAN) [Suspect]
     Indication: HYPOGAMMAGLOBULINAEMIA
     Dosage: 25 MG;IV
     Route: 042
     Dates: start: 20120530
  8. PHYTONADIONE [Concomitant]
  9. FLUTICASONE PROPIONATE/SALMETEROL [Concomitant]
  10. TAURINE [Concomitant]
  11. VITAMIN A D [Concomitant]
  12. TARGOCID [Suspect]
     Indication: STAPHYLOCOCCAL INFECTION
     Dosage: 400 MG;QD;IV
     Route: 042
     Dates: start: 20120528, end: 20120611
  13. AZITHROMYCIN [Concomitant]
  14. OMEPRAZOLE [Concomitant]
  15. VITAMIN E [Concomitant]
  16. CEFTAZIDIME [Concomitant]
  17. COLECALCIFEROL [Concomitant]
  18. DORNASE ALFA [Concomitant]

REACTIONS (7)
  - SERUM SICKNESS [None]
  - FEELING ABNORMAL [None]
  - PYREXIA [None]
  - MALAISE [None]
  - RENAL IMPAIRMENT [None]
  - APHAGIA [None]
  - DISSEMINATED INTRAVASCULAR COAGULATION [None]
